FAERS Safety Report 14700762 (Version 1)
Quarter: 2018Q1

REPORT INFORMATION
  Report Type: Spontaneous
  Country: US (occurrence: US)
  Receive Date: 20180328
  Receipt Date: 20180328
  Transmission Date: 20180509
  Serious: Yes (Other)
  Sender: FDA-Public Use
  Company Number: None

PATIENT
  Age: 0 Day
  Sex: Male
  Weight: 2.72 kg

DRUGS (2)
  1. SEROQUEL [Suspect]
     Active Substance: QUETIAPINE FUMARATE
     Dosage: SEROQUEL (300 WEEKS-DELIVERY) - BIPOLAR DISORDER
  2. LAMICTAL [Suspect]
     Active Substance: LAMOTRIGINE
     Dosage: LAMICTAL (0-8 WEEKS) - BIPOLAR DISORDER

REACTIONS (5)
  - Cardiac murmur [None]
  - Hypospadias [None]
  - Acrochordon [None]
  - Ventricular septal defect [None]
  - Tachypnoea [None]

NARRATIVE: CASE EVENT DATE: 20160324
